FAERS Safety Report 4461685-7 (Version None)
Quarter: 2004Q3

REPORT INFORMATION
  Report Type: 
  Country: None (occurrence: None)
  Receive Date: 20040923
  Receipt Date: 20040921
  Transmission Date: 20050211
  Serious: No
  Sender: FDA-Public Use
  Company Number: DE-SHR-04-023522

PATIENT
  Sex: Female

DRUGS (1)
  1. YASMIN [Suspect]
     Dosage: ORAL
     Route: 048
     Dates: end: 20040401

REACTIONS (1)
  - BLOOD ALDOSTERONE INCREASED [None]
